FAERS Safety Report 9048974 (Version 1)
Quarter: 2013Q1

REPORT INFORMATION
  Report Type: Spontaneous
  Country: JP (occurrence: None)
  Receive Date: 20130117
  Receipt Date: 20130117
  Transmission Date: 20140127
  Serious: No
  Sender: FDA-Public Use
  Company Number: DSA_61900_2013

PATIENT
  Age: 44 Year
  Sex: Female

DRUGS (5)
  1. FLUOROURACIL (FLUOROURACIL) [Suspect]
     Indication: RECTAL CANCER
     Dosage: (DF)
  2. FLUOROURACIL (FLUOROURACIL) [Suspect]
     Indication: METASTASIS
     Dosage: (DF)
  3. IRINOTECAN [Suspect]
  4. FOLINIC ACID [Concomitant]
  5. BEVACIZUMAB [Concomitant]

REACTIONS (8)
  - Hyperammonaemia [None]
  - Renal impairment [None]
  - Chills [None]
  - Pyrexia [None]
  - Depressed level of consciousness [None]
  - Oliguria [None]
  - Haemodialysis [None]
  - Blood creatinine increased [None]
